FAERS Safety Report 8825917 (Version 1)
Quarter: 2012Q4

REPORT INFORMATION
  Report Type: 
  Country: US (occurrence: US)
  Receive Date: 20121005
  Receipt Date: 20121005
  Transmission Date: 20130627
  Serious: No
  Sender: FDA-Public Use
  Company Number: US-BAYER-2012-104219

PATIENT
  Sex: Female

DRUGS (1)
  1. BETASERON [Suspect]

REACTIONS (2)
  - Feeling abnormal [None]
  - Malaise [None]
